FAERS Safety Report 10397540 (Version 3)
Quarter: 2014Q3

REPORT INFORMATION
  Report Type: Report from Study
  Country: AU (occurrence: AU)
  Receive Date: 20140820
  Receipt Date: 20140908
  Transmission Date: 20150326
  Serious: Yes (Hospitalization, Other)
  Sender: FDA-Public Use
  Company Number: PHHY2014AU054658

PATIENT
  Age: 40 Year
  Sex: Male

DRUGS (7)
  1. CLOZARIL [Suspect]
     Active Substance: CLOZAPINE
     Indication: SCHIZOPHRENIA
     Dosage: 150 MG, NOCTE
     Route: 048
     Dates: start: 20050824, end: 20140502
  2. CLOZARIL [Suspect]
     Active Substance: CLOZAPINE
     Indication: PSYCHOTIC DISORDER
     Dosage: UKN
     Route: 048
  3. ARIPIPRAZOLE [Concomitant]
     Active Substance: ARIPIPRAZOLE
     Indication: PSYCHOTIC DISORDER
     Dosage: 30 MG, DAILY (NOCTE)
     Route: 048
  4. INTERFERON NOS [Concomitant]
     Active Substance: INTERFERON
     Dosage: UKN
  5. CLOZARIL [Suspect]
     Active Substance: CLOZAPINE
     Indication: SCHIZOPHRENIA, PARANOID TYPE
  6. ABILIFY [Concomitant]
     Active Substance: ARIPIPRAZOLE
     Indication: SCHIZOPHRENIA
     Dosage: 30 MG, DAILY NOCTE
     Route: 048
  7. ESCITALOPRAM [Concomitant]
     Active Substance: ESCITALOPRAM OXALATE
     Indication: DEPRESSED MOOD
     Dosage: 10 MG, DAILY, NOCTE
     Route: 048

REACTIONS (15)
  - White blood cell count decreased [Recovering/Resolving]
  - Chronic hepatitis C [Unknown]
  - Neutropenia [Not Recovered/Not Resolved]
  - Cough [Recovering/Resolving]
  - Pancytopenia [Unknown]
  - Infection [Recovered/Resolved]
  - Red blood cell count decreased [Recovered/Resolved]
  - Thrombocytopenia [Unknown]
  - Pallor [Unknown]
  - Lower respiratory tract infection [Recovered/Resolved]
  - Hypersplenism [Unknown]
  - Malaise [Recovered/Resolved]
  - Splenomegaly [Unknown]
  - Portal hypertension [Unknown]
  - Hepatic cirrhosis [Unknown]

NARRATIVE: CASE EVENT DATE: 20140502
